FAERS Safety Report 9462539 (Version 1)
Quarter: 2013Q3

REPORT INFORMATION
  Report Type: Report from Study
  Country: JP (occurrence: JP)
  Receive Date: 20130816
  Receipt Date: 20130816
  Transmission Date: 20140515
  Serious: Yes (Death, Hospitalization, Disabling, Other)
  Sender: FDA-Public Use
  Company Number: JP-GENZYME-THYM-1003986

PATIENT
  Age: 78 Year
  Sex: Female
  Weight: 46 kg

DRUGS (9)
  1. THYMOGLOBULIN [Suspect]
     Indication: APLASTIC ANAEMIA
     Dosage: UNK
     Route: 065
     Dates: start: 20130129, end: 20130204
  2. NEORAL [Suspect]
     Indication: APLASTIC ANAEMIA
     Dosage: UNK
     Route: 065
     Dates: start: 20130125, end: 20130412
  3. ITORAT [Concomitant]
     Indication: INFECTION PROPHYLAXIS
     Dosage: UNK
     Route: 065
     Dates: start: 20130124, end: 20130412
  4. BACTRAMIN [Concomitant]
     Indication: INFECTION PROPHYLAXIS
     Dosage: UNK
     Route: 065
     Dates: start: 20130124, end: 20130412
  5. PARIET [Concomitant]
     Indication: PROPHYLAXIS AGAINST GASTROINTESTINAL ULCER
     Dosage: UNK
     Route: 065
     Dates: start: 20130307, end: 20130412
  6. FAMOTIDINE [Concomitant]
     Indication: PROPHYLAXIS AGAINST GASTROINTESTINAL ULCER
     Dosage: UNK
     Route: 065
     Dates: start: 20130124, end: 20130306
  7. SENNOSIDE [Concomitant]
     Indication: CONSTIPATION PROPHYLAXIS
     Dosage: UNK
     Route: 065
     Dates: start: 20130124, end: 20130412
  8. NEUTROGIN [Concomitant]
     Indication: APLASTIC ANAEMIA
     Dosage: UNK
     Route: 065
     Dates: start: 20130131, end: 20130222
  9. NEUTROGIN [Concomitant]
     Dosage: UNK
     Route: 065
     Dates: start: 20130315, end: 20130412

REACTIONS (6)
  - Hepatic function abnormal [Recovered/Resolved]
  - Retinal haemorrhage [Recovered/Resolved with Sequelae]
  - Sepsis [Unknown]
  - Cytomegalovirus infection [Recovered/Resolved]
  - Herpes zoster [Recovered/Resolved]
  - Malignant neoplasm of unknown primary site [Fatal]
